FAERS Safety Report 6270182-8 (Version None)
Quarter: 2009Q3

REPORT INFORMATION
  Report Type: 
  Country: None (occurrence: None)
  Receive Date: 20090716
  Receipt Date: 20090615
  Transmission Date: 20100115
  Serious: No
  Sender: FDA-Public Use
  Company Number: US-BAYER-200923856NA

PATIENT
  Age: 39 Year
  Sex: Female

DRUGS (2)
  1. YAZ [Suspect]
     Indication: CONTRACEPTION
     Dosage: 1 TAB / DAY
     Route: 048
  2. ORAL CONTRACEPTIVE NOS [Concomitant]

REACTIONS (1)
  - ANGINA PECTORIS [None]
